FAERS Safety Report 11080821 (Version 1)
Quarter: 2015Q2

REPORT INFORMATION
  Report Type: Spontaneous
  Country: KR (occurrence: KR)
  Receive Date: 20150501
  Receipt Date: 20150501
  Transmission Date: 20150821
  Serious: Yes (Other)
  Sender: FDA-Public Use
  Company Number: KR-ACCORD-030410

PATIENT
  Age: 58 Year
  Sex: Male

DRUGS (1)
  1. METHOTREXATE [Suspect]
     Active Substance: METHOTREXATE
     Indication: NON-SMALL CELL LUNG CANCER
     Dosage: BI-WEEKLY VIA AN OMMAYA RESERVOIR
     Route: 037

REACTIONS (1)
  - Treatment failure [Unknown]
